FAERS Safety Report 14778051 (Version 2)
Quarter: 2018Q2

REPORT INFORMATION
  Report Type: Spontaneous
  Country: US (occurrence: US)
  Receive Date: 20180419
  Receipt Date: 20180420
  Transmission Date: 20180711
  Serious: No
  Sender: FDA-Public Use
  Company Number: US-BAYER-2018-075133

PATIENT
  Age: 86 Year
  Sex: Male
  Weight: 92.97 kg

DRUGS (2)
  1. MIRAFIBER SUGAR FREE ORANGE POWDER [Suspect]
     Active Substance: METHYLCELLULOSES
     Indication: GASTROINTESTINAL DISORDER
     Dosage: UNK
  2. MIRALAX [Suspect]
     Active Substance: POLYETHYLENE GLYCOL 3350
     Dosage: 17 G, IN 4-8 OZ OF WATER
     Route: 048

REACTIONS (3)
  - Drug ineffective [None]
  - Product use in unapproved indication [Unknown]
  - Incorrect drug administration duration [Unknown]
